FAERS Safety Report 15478836 (Version 3)
Quarter: 2018Q4

REPORT INFORMATION
  Report Type: Spontaneous
  Country: JP (occurrence: JP)
  Receive Date: 20181009
  Receipt Date: 20181023
  Transmission Date: 20190205
  Serious: Yes (Life-Threatening, Hospitalization, Other)
  Sender: FDA-Public Use
  Company Number: JP-SAKK-2018SA272724AA

PATIENT
  Age: 53 Year
  Sex: Male
  Weight: 52 kg

DRUGS (14)
  1. FLUOROURACIL. [Concomitant]
     Active Substance: FLUOROURACIL
     Indication: METASTASES TO LIVER
     Dosage: 4000 MG, CONTINUOUS, QOW
     Route: 042
     Dates: start: 20180803, end: 20180920
  2. CALCIUM LEVOFOLINATE [Concomitant]
     Active Substance: LEVOLEUCOVORIN CALCIUM
     Indication: COLON CANCER
     Dosage: 325 MG, QOW
     Route: 042
     Dates: start: 20180803, end: 20180920
  3. DEXAMETHASONE SODIUM PHOSPHATE. [Concomitant]
     Active Substance: DEXAMETHASONE SODIUM PHOSPHATE
     Indication: COLON CANCER
     Dosage: 9.9 MG, QOW
     Route: 042
     Dates: start: 20180803, end: 20180920
  4. LOXONIN [Suspect]
     Active Substance: LOXOPROFEN SODIUM
     Indication: COLON CANCER
     Dosage: 60 MG, ONLY WHEN HAVING PAIN
     Route: 048
  5. ALOXI [Concomitant]
     Active Substance: PALONOSETRON HYDROCHLORIDE
     Indication: COLON CANCER
     Dosage: 0.75 MG, QOW
     Route: 042
     Dates: start: 20180803, end: 20180920
  6. IRINOTECAN [Suspect]
     Active Substance: IRINOTECAN
     Indication: COLON CANCER
     Dosage: 200 MG, QOW
     Route: 041
     Dates: start: 20180803, end: 20180920
  7. IRINOTECAN [Suspect]
     Active Substance: IRINOTECAN
     Indication: METASTASES TO LIVER
  8. FLUOROURACIL. [Concomitant]
     Active Substance: FLUOROURACIL
     Indication: COLON CANCER
     Dosage: 650 MG, BOLUS, QOW
     Route: 042
     Dates: start: 20180803, end: 20180920
  9. ALOXI [Concomitant]
     Active Substance: PALONOSETRON HYDROCHLORIDE
     Indication: METASTASES TO LIVER
  10. ZALTRAP [Suspect]
     Active Substance: ZIV-AFLIBERCEPT
     Indication: METASTASES TO LIVER
  11. DEXAMETHASONE SODIUM PHOSPHATE. [Concomitant]
     Active Substance: DEXAMETHASONE SODIUM PHOSPHATE
     Indication: METASTASES TO LIVER
  12. ZALTRAP [Suspect]
     Active Substance: ZIV-AFLIBERCEPT
     Indication: COLON CANCER
     Dosage: 200 MG, QOW
     Route: 041
     Dates: start: 20180803, end: 20180920
  13. LOXONIN [Suspect]
     Active Substance: LOXOPROFEN SODIUM
     Indication: METASTASES TO LIVER
  14. CALCIUM LEVOFOLINATE [Concomitant]
     Active Substance: LEVOLEUCOVORIN CALCIUM
     Indication: METASTASES TO LIVER

REACTIONS (3)
  - Abdominal pain [Recovered/Resolved with Sequelae]
  - Small intestinal perforation [Recovered/Resolved with Sequelae]
  - Peritonitis [Recovered/Resolved with Sequelae]

NARRATIVE: CASE EVENT DATE: 20180927
